FAERS Safety Report 5867338-2 (Version None)
Quarter: 2008Q3

REPORT INFORMATION
  Report Type: 
  Country: None (occurrence: None)
  Receive Date: 20080902
  Receipt Date: 20080822
  Transmission Date: 20090109
  Serious: Yes (Other)
  Sender: FDA-Public Use
  Company Number: PHBS2008IT05526

PATIENT

DRUGS (1)
  1. IMATINIB MESYLATE [Suspect]
     Indication: CHRONIC MYELOID LEUKAEMIA
     Dosage: 300-600 MG/DAY

REACTIONS (2)
  - HYPOGAMMAGLOBULINAEMIA [None]
  - PNEUMONIA [None]
